FAERS Safety Report 9359768 (Version 1)
Quarter: 2013Q2

REPORT INFORMATION
  Report Type: Spontaneous
  Country: SE (occurrence: SE)
  Receive Date: 20130621
  Receipt Date: 20130621
  Transmission Date: 20140414
  Serious: Yes (Hospitalization)
  Sender: FDA-Public Use
  Company Number: SE-009507513-1306SWE008661

PATIENT
  Age: 89 Year
  Sex: Male

DRUGS (17)
  1. SIMVASTATIN [Suspect]
     Indication: HYPERLIPIDAEMIA
     Dosage: 20 MG, UNK
     Route: 048
     Dates: start: 20091207, end: 20130313
  2. SIMVASTATIN [Suspect]
     Indication: HYPERTRIGLYCERIDAEMIA
  3. RESONIUM [Suspect]
     Dosage: UNK
     Route: 048
     Dates: start: 20120510, end: 20130311
  4. ARANESP (DARBEPOETIN ALFA) [Concomitant]
     Dosage: PRE-FILLED SYRINGE
  5. OMEPRAZOLE [Concomitant]
     Dosage: GASTRO-RESISTANT HARD CAPSULE
     Route: 048
  6. AMLORATIO [Concomitant]
     Route: 048
  7. BISOPROLOL [Concomitant]
     Route: 048
  8. FOLACIN [Concomitant]
     Route: 048
  9. PANODIL [Concomitant]
     Route: 048
  10. MALVITONA [Concomitant]
     Route: 048
  11. IMPUGAN [Concomitant]
  12. FURIX [Concomitant]
     Dosage: 10 MG/ML
  13. ALLOPURINOL [Concomitant]
     Route: 048
  14. STILNOCT [Concomitant]
     Route: 048
  15. SPIRONOLACTONE [Concomitant]
  16. XERODENT [Concomitant]
  17. BETOLVIDON [Concomitant]
     Route: 048

REACTIONS (2)
  - Faecal incontinence [Unknown]
  - Diarrhoea [Unknown]
